FAERS Safety Report 4269415-9 (Version None)
Quarter: 2004Q1

REPORT INFORMATION
  Report Type: 
  Country: None (occurrence: None)
  Receive Date: 20040112
  Receipt Date: 20040112
  Transmission Date: 20041129
  Serious: Yes (Hospitalization)
  Sender: FDA-Public Use
  Company Number: None

PATIENT
  Age: 56 Year
  Sex: Male

DRUGS (8)
  1. DONEPEZIL [Suspect]
     Indication: DEMENTIA ALZHEIMER'S TYPE
     Dosage: 20 QD
  2. QUETIAPINE [Suspect]
     Dosage: 200 MG TID
  3. FLUOXETINE [Suspect]
     Dosage: 60 MG QHS
  4. TYLENOL [Concomitant]
  5. AMPICILLIN [Concomitant]
  6. ROCEPHIN [Concomitant]
  7. ASPIRIN [Concomitant]
  8. TYLENOL W/ CODEINE NO. 3 [Concomitant]

REACTIONS (6)
  - AGITATION [None]
  - BLOOD CREATINE PHOSPHOKINASE INCREASED [None]
  - DELIRIUM [None]
  - LEUKOCYTOSIS [None]
  - NEUROLEPTIC MALIGNANT SYNDROME [None]
  - PYREXIA [None]
